FAERS Safety Report 5574237-2 (Version None)
Quarter: 2007Q4

REPORT INFORMATION
  Report Type: 
  Country: None (occurrence: None)
  Receive Date: 20071227
  Receipt Date: 20071219
  Transmission Date: 20080405
  Serious: Yes (Hospitalization, Other)
  Sender: FDA-Public Use
  Company Number: US-BAYER-200716757NA

PATIENT
  Age: 15 Month
  Sex: Female

DRUGS (6)
  1. CAMPATH [Suspect]
     Indication: MALIGNANT HISTIOCYTOSIS
     Dosage: UNIT DOSE: 30 MG/ML
     Route: 058
     Dates: start: 20071212
  2. METHOTREXATE [Concomitant]
     Indication: MALIGNANT HISTIOCYTOSIS
  3. CYCLOSPORINE [Concomitant]
     Indication: MALIGNANT HISTIOCYTOSIS
  4. DEXAMETHASONE TAB [Concomitant]
     Indication: MALIGNANT HISTIOCYTOSIS
  5. BACTRIM [Concomitant]
  6. FLUCONAZOLE [Concomitant]

REACTIONS (3)
  - CHILLS [None]
  - CONVULSION [None]
  - HYPERTENSION [None]
